FAERS Safety Report 18669116 (Version 3)
Quarter: 2022Q1

REPORT INFORMATION
  Report Type: Report from Study
  Country: NL (occurrence: NL)
  Receive Date: 20201228
  Receipt Date: 20220131
  Transmission Date: 20220423
  Serious: Yes (Hospitalization)
  Sender: FDA-Public Use
  Company Number: NL-AMGEN-NLDSL2020209916

PATIENT
  Age: 68 Year
  Sex: Female

DRUGS (8)
  1. XGEVA [Suspect]
     Active Substance: DENOSUMAB
     Indication: Prophylaxis
     Dosage: 120 MILLIGRAM, Q4WK
     Route: 058
     Dates: start: 20200217
  2. XGEVA [Suspect]
     Active Substance: DENOSUMAB
     Dosage: 120 MILLIGRAM, Q4WK
     Route: 058
  3. LETROZOLE [Concomitant]
     Active Substance: LETROZOLE
     Dosage: 2.5 MILLIGRAM, QD
  4. OMEPRAZOLE [Concomitant]
     Active Substance: OMEPRAZOLE
     Dosage: 20 MILLIGRAM 1D1C
  5. CAPECITABINE [Concomitant]
     Active Substance: CAPECITABINE
     Dosage: 150 MILLIGRAM 2D2T
  6. CAPECITABINE [Concomitant]
     Active Substance: CAPECITABINE
     Dosage: 150 MILLIGRAM 2D3T
  7. COSMETICS [Concomitant]
     Active Substance: COSMETICS
     Dosage: 10% 1D-CR APPLY
  8. FENTANYL [Concomitant]
     Active Substance: FENTANYL
     Dosage: 25UG/HR (SANDOZ/1A PHARMA) 1DD1PL

REACTIONS (3)
  - Myalgia [Recovered/Resolved]
  - Peripheral swelling [Recovering/Resolving]
  - Lymphadenitis [Not Recovered/Not Resolved]

NARRATIVE: CASE EVENT DATE: 20201125
